FAERS Safety Report 18531869 (Version 1)
Quarter: 2020Q4

REPORT INFORMATION
  Report Type: Spontaneous
  Country: US (occurrence: US)
  Receive Date: 20201123
  Receipt Date: 20201123
  Transmission Date: 20210114
  Serious: Yes (Hospitalization, Other)
  Sender: FDA-Public Use
  Company Number: US-ROCHE-2712342

PATIENT
  Sex: Female

DRUGS (1)
  1. OCREVUS [Suspect]
     Active Substance: OCRELIZUMAB
     Indication: PRODUCT USED FOR UNKNOWN INDICATION
     Route: 065

REACTIONS (12)
  - Upper respiratory tract infection [Unknown]
  - Cough [Unknown]
  - Pharyngeal swelling [Unknown]
  - Ear pain [Unknown]
  - Hypoacusis [Unknown]
  - Ear pruritus [Unknown]
  - Sinusitis [Unknown]
  - Oxygen saturation decreased [Unknown]
  - Illness [Unknown]
  - Nasal congestion [Unknown]
  - Insomnia [Unknown]
  - Ear infection [Unknown]
